FAERS Safety Report 25528113 (Version 3)
Quarter: 2025Q3

REPORT INFORMATION
  Report Type: Spontaneous
  Country: US (occurrence: US)
  Receive Date: 20250708
  Receipt Date: 20250717
  Transmission Date: 20251021
  Serious: No
  Sender: AMGEN
  Company Number: US-AMGEN-USASP2025130737

PATIENT
  Age: 83 Year
  Sex: Male

DRUGS (2)
  1. NEULASTA [Suspect]
     Active Substance: PEGFILGRASTIM
     Indication: Mantle cell lymphoma
     Route: 065
     Dates: start: 20250310
  2. NEULASTA [Suspect]
     Active Substance: PEGFILGRASTIM
     Route: 065
     Dates: start: 20250310

REACTIONS (1)
  - Device adhesion issue [Unknown]

NARRATIVE: CASE EVENT DATE: 20250623
